FAERS Safety Report 11311316 (Version 3)
Quarter: 2015Q3

REPORT INFORMATION
  Report Type: Report from Study
  Country: TR (occurrence: TR)
  Receive Date: 20150727
  Receipt Date: 20150824
  Transmission Date: 20151125
  Serious: Yes (Death)
  Sender: FDA-Public Use
  Company Number: TR-ROCHE-1610967

PATIENT
  Age: 75 Year
  Sex: Male
  Weight: 61.6 kg

DRUGS (4)
  1. IBRUTINIB [Suspect]
     Active Substance: IBRUTINIB
     Indication: CHRONIC LYMPHOCYTIC LEUKAEMIA
     Dosage: FREQUENCY: 1X3?DATE OF LAST DOSE PRIOR TO EVENT: 15/JUL/2015
     Route: 065
     Dates: start: 20150713, end: 20150715
  2. TRANSAMINE [Concomitant]
     Indication: EPISTAXIS
     Route: 065
     Dates: start: 201505, end: 20150712
  3. OBINUTUZUMAB [Suspect]
     Active Substance: OBINUTUZUMAB
     Indication: CHRONIC LYMPHOCYTIC LEUKAEMIA
     Dosage: FREQUENCY: 1X1?LAST DOSE PRIOR TO THE EVENT: 14/JUL/2015
     Route: 065
     Dates: start: 20150713
  4. ZEFFIX [Concomitant]
     Active Substance: LAMIVUDINE
     Indication: HEPATITIS B
     Dosage: 1X1
     Route: 065
     Dates: start: 2015, end: 20150715

REACTIONS (1)
  - Cerebrovascular accident [Fatal]

NARRATIVE: CASE EVENT DATE: 20150717
